FAERS Safety Report 7975124 (Version 3)
Quarter: 2012Q4

REPORT INFORMATION
  Report Type: 
  Country: GB (occurrence: None)
  Receive Date: 20110517
  Receipt Date: 20121220
  Transmission Date: 20130627
  Serious: Yes (Death, Hospitalization)
  Sender: FDA-Public Use
  Company Number: 2011AP000922

PATIENT
  Age: 9 Year
  Sex: Male

DRUGS (3)
  1. LAMOTRIGINE [Suspect]
     Indication: PRODUCT USED FOR UNKNOWN INDICATION
  2. LEVETIRACETAM [Suspect]
     Indication: PRODUCT USED FOR UNKNOWN INDICATION
  3. THIOPENTONE SODIUIM (THIOPENTAL SODIUM) [Concomitant]

REACTIONS (13)
  - Encephalopathy [None]
  - Status epilepticus [None]
  - Rhabdomyolysis [None]
  - Dystonia [None]
  - Movement disorder [None]
  - Cognitive disorder [None]
  - Hyperpyrexia [None]
  - Metabolic acidosis [None]
  - Choreoathetosis [None]
  - Neurological decompensation [None]
  - Haemodialysis [None]
  - Cardio-respiratory arrest [None]
  - Hepatorenal failure [None]
